FAERS Safety Report 14896916 (Version 2)
Quarter: 2018Q3

REPORT INFORMATION
  Report Type: Report from Study
  Country: ES (occurrence: ES)
  Receive Date: 20180515
  Receipt Date: 20180706
  Transmission Date: 20181010
  Serious: Yes (Death)
  Sender: FDA-Public Use
  Company Number: ES-IPSEN BIOPHARMACEUTICALS, INC.-2018-06979

PATIENT
  Age: 69 Year
  Sex: Male

DRUGS (5)
  1. ABSTRAL [Concomitant]
     Active Substance: FENTANYL CITRATE
  2. MST CONTINUS [Concomitant]
     Active Substance: MORPHINE SULFATE
  3. ONIVYDE [Suspect]
     Active Substance: IRINOTECAN HYDROCHLORIDE
     Indication: PRODUCT USED FOR UNKNOWN INDICATION
     Dosage: NOT REPORTED
     Route: 065
     Dates: start: 20180321, end: 20180404
  4. FORTECORTIN [Concomitant]
     Active Substance: DEXAMETHASONE
  5. MAYGACE ALTAS DOSIS [Concomitant]

REACTIONS (1)
  - Neoplasm progression [Fatal]

NARRATIVE: CASE EVENT DATE: 2018
